FAERS Safety Report 6318958-2 (Version None)
Quarter: 2009Q3

REPORT INFORMATION
  Report Type: 
  Country: None (occurrence: None)
  Receive Date: 20090821
  Receipt Date: 20090511
  Transmission Date: 20100115
  Serious: No
  Sender: FDA-Public Use
  Company Number: US-ABBOTT-09P-163-0572767-00

PATIENT
  Sex: Male
  Weight: 80.812 kg

DRUGS (6)
  1. NIASPAN [Suspect]
     Indication: BLOOD CHOLESTEROL INCREASED
     Route: 048
     Dates: start: 20090301, end: 20090509
  2. LOVAZA [Concomitant]
     Indication: BLOOD CHOLESTEROL
     Route: 048
  3. TOPROL-XL [Concomitant]
     Indication: BLOOD PRESSURE
     Route: 048
  4. ASPIRIN [Concomitant]
     Indication: FLUSHING
     Route: 048
  5. ASPIRIN [Concomitant]
     Indication: PROPHYLAXIS
  6. SIMVASTATIN [Concomitant]
     Indication: BLOOD CHOLESTEROL
     Route: 048

REACTIONS (4)
  - FLUSHING [None]
  - PRURITUS [None]
  - RASH MACULAR [None]
  - SKIN BURNING SENSATION [None]
